FAERS Safety Report 4368855-7 (Version None)
Quarter: 2004Q2

REPORT INFORMATION
  Report Type: 
  Country: None (occurrence: None)
  Receive Date: 20040525
  Receipt Date: 20040511
  Transmission Date: 20050107
  Serious: Yes (Death)
  Sender: FDA-Public Use
  Company Number: US-JNJFOC-20040404356

PATIENT
  Age: 19 Year
  Sex: Male

DRUGS (1)
  1. DURAGESIC [Suspect]
     Indication: INTENTIONAL MISUSE
     Dosage: TRANSDERMAL
     Route: 062
     Dates: start: 20040410, end: 20040410

REACTIONS (3)
  - INTENTIONAL MISUSE [None]
  - MEDICATION ERROR [None]
  - SELF-MEDICATION [None]
